FAERS Safety Report 7771397-X (Version None)
Quarter: 2011Q3

REPORT INFORMATION
  Report Type: 
  Country: None (occurrence: None)
  Receive Date: 20110922
  Receipt Date: 20110516
  Transmission Date: 20111222
  Serious: Yes (Other)
  Sender: FDA-Public Use
  Company Number: US-ASTRAZENECA-2009UW03123

PATIENT
  Age: 41 Year
  Sex: Female
  Weight: 74.4 kg

DRUGS (2)
  1. SEROQUEL [Suspect]
     Indication: DEPRESSION
     Route: 048
     Dates: start: 20010101, end: 20030101
  2. SIMVASTATIN [Concomitant]
     Dates: start: 20090616

REACTIONS (6)
  - MACULAR OEDEMA [None]
  - CATARACT [None]
  - TYPE 2 DIABETES MELLITUS [None]
  - DIABETES MELLITUS INADEQUATE CONTROL [None]
  - HYPERGLYCAEMIA [None]
  - GLAUCOMA [None]
